FAERS Safety Report 22270622 (Version 1)
Quarter: 2023Q2

REPORT INFORMATION
  Report Type: Report from Study
  Country: US (occurrence: US)
  Receive Date: 20230501
  Receipt Date: 20230501
  Transmission Date: 20230722
  Serious: Yes (Other)
  Sender: FDA-Public Use
  Company Number: US-ABBVIE-4280076

PATIENT
  Age: 47 Year
  Sex: Female
  Weight: 81.646 kg

DRUGS (2)
  1. RINVOQ [Suspect]
     Active Substance: UPADACITINIB
     Indication: Rheumatoid arthritis
     Dosage: FIRST ADMIN DATE 2022
     Route: 048
     Dates: end: 20230115
  2. RINVOQ [Suspect]
     Active Substance: UPADACITINIB
     Indication: Rheumatoid arthritis
     Route: 048
     Dates: start: 20220720, end: 20221003

REACTIONS (6)
  - Shoulder fracture [Unknown]
  - Infusion [Recovered/Resolved]
  - Arthralgia [Not Recovered/Not Resolved]
  - Infusion [Recovered/Resolved]
  - Fractured coccyx [Unknown]
  - Fall [Unknown]

NARRATIVE: CASE EVENT DATE: 20220728
